FAERS Safety Report 10404539 (Version 1)
Quarter: 2014Q2

REPORT INFORMATION
  Report Type: Spontaneous
  Country: US (occurrence: None)
  Receive Date: 20140514
  Receipt Date: 20140514
  Transmission Date: 20141212
  Serious: Yes (Other)
  Sender: FDA-Public Use
  Company Number: 089429

PATIENT
  Sex: Female
  Weight: 87.9 kg

DRUGS (1)
  1. CIMZIA [Suspect]
     Indication: COLITIS ULCERATIVE
     Dosage: (SUBCUTANEOUS)?(04/19/2013 TO CONTINUING)

REACTIONS (2)
  - Caesarean section [None]
  - Exposure during pregnancy [None]
